FAERS Safety Report 9675210 (Version 3)
Quarter: 2013Q4

REPORT INFORMATION
  Report Type: Spontaneous
  Country: US (occurrence: US)
  Receive Date: 20131107
  Receipt Date: 20131202
  Transmission Date: 20140711
  Serious: No
  Sender: FDA-Public Use
  Company Number: US-PFIZER INC-2013315448

PATIENT
  Age: 53 Year
  Sex: Male
  Weight: 65.76 kg

DRUGS (1)
  1. NEURONTIN [Suspect]
     Indication: NEUROPATHY PERIPHERAL
     Dosage: 600 MG, 2X/DAY (BY TAKING TWO CAPSULES OF 300MG)
     Route: 048
     Dates: start: 2012, end: 20130915

REACTIONS (26)
  - Circumstance or information capable of leading to medication error [Unknown]
  - Blood alcohol increased [Unknown]
  - Dizziness [Recovered/Resolved]
  - Disturbance in attention [Unknown]
  - Visual impairment [Recovered/Resolved]
  - Impaired driving ability [Recovered/Resolved]
  - Stress [Recovered/Resolved]
  - Weight decreased [Unknown]
  - Weight fluctuation [Unknown]
  - Coordination abnormal [Recovered/Resolved]
  - Fatigue [Recovered/Resolved]
  - Dyskinesia [Recovered/Resolved]
  - Eye movement disorder [Recovered/Resolved]
  - Local swelling [Recovered/Resolved]
  - Local swelling [Recovered/Resolved]
  - Pruritus [Recovered/Resolved]
  - Rash [Recovered/Resolved]
  - Urticaria [Recovered/Resolved]
  - Feeling abnormal [Recovered/Resolved]
  - Depression [Recovered/Resolved]
  - Anxiety [Recovered/Resolved]
  - Agitation [Recovered/Resolved]
  - Panic attack [Recovered/Resolved]
  - Irritability [Recovered/Resolved]
  - Insomnia [Recovered/Resolved]
  - Pain [Recovered/Resolved]
